FAERS Safety Report 7661503-X (Version None)
Quarter: 2011Q3

REPORT INFORMATION
  Report Type: 
  Country: None (occurrence: None)
  Receive Date: 20110805
  Receipt Date: 20101018
  Transmission Date: 20111222
  Serious: No
  Sender: FDA-Public Use
  Company Number: US-ABBOTT-10P-163-0679329-00

PATIENT
  Sex: Female
  Weight: 69.916 kg

DRUGS (6)
  1. ASPIRIN [Concomitant]
     Indication: PRODUCT USED FOR UNKNOWN INDICATION
  2. AMARYL [Concomitant]
     Indication: DIABETES MELLITUS
  3. NIASPAN [Suspect]
     Indication: BLOOD CHOLESTEROL INCREASED
     Dates: start: 20101007
  4. SIMVASTATIN [Concomitant]
     Indication: BLOOD CHOLESTEROL INCREASED
  5. HYZAAR [Concomitant]
     Indication: HYPERTENSION
  6. TOPROL-XL [Concomitant]
     Indication: HYPERTENSION

REACTIONS (4)
  - ASTHENOPIA [None]
  - EYE PAIN [None]
  - LACRIMATION INCREASED [None]
  - LETHARGY [None]
